FAERS Safety Report 7331555-5 (Version None)
Quarter: 2011Q1

REPORT INFORMATION
  Report Type: 
  Country: None (occurrence: None)
  Receive Date: 20110304
  Receipt Date: 20110207
  Transmission Date: 20110831
  Serious: No
  Sender: FDA-Public Use
  Company Number: US-B.I. PHARMACEUTICALS,INC./RIDGEFIELD-2011-BP-03829BP

PATIENT
  Sex: Female

DRUGS (5)
  1. DILTIAZEM [Concomitant]
     Indication: ATRIAL FIBRILLATION
     Dosage: 240 MG
     Route: 048
  2. PRADAXA [Suspect]
     Indication: ATRIAL FIBRILLATION
     Dosage: 300 MG
     Route: 048
     Dates: start: 20110107
  3. CETALOPRAM [Concomitant]
     Indication: DEPRESSION
     Route: 048
  4. FOLIC ACID [Concomitant]
     Indication: PROPHYLAXIS
     Route: 048
  5. ATENOLOL [Concomitant]
     Indication: ATRIAL FIBRILLATION
     Dosage: 25 MG
     Route: 048

REACTIONS (6)
  - HEADACHE [None]
  - POOR QUALITY SLEEP [None]
  - OEDEMA PERIPHERAL [None]
  - DYSPNOEA [None]
  - COUGH [None]
  - WHEEZING [None]
